FAERS Safety Report 12081392 (Version 2)
Quarter: 2016Q1

REPORT INFORMATION
  Report Type: Spontaneous
  Country: IT (occurrence: IT)
  Receive Date: 20160216
  Receipt Date: 20160224
  Transmission Date: 20160526
  Serious: Yes (Other)
  Sender: FDA-Public Use
  Company Number: IT-ABBVIE-16P-083-1557242-00

PATIENT
  Age: 74 Year
  Sex: Male
  Weight: 68 kg

DRUGS (5)
  1. VIEKIRAX [Suspect]
     Active Substance: OMBITASVIR\PARITAPREVIR\RITONAVIR
     Indication: CHRONIC HEPATITIS C
     Route: 048
     Dates: start: 20150909, end: 20150921
  2. RIBAVIRINA SANDOZ [Suspect]
     Active Substance: RIBAVIRIN
     Indication: CHRONIC HEPATITIS C
     Route: 048
     Dates: start: 20150909, end: 20150921
  3. EXVIERA [Suspect]
     Active Substance: DASABUVIR
     Indication: CHRONIC HEPATITIS C
     Route: 048
     Dates: start: 20150909, end: 20150921
  4. ISOPTIN [Concomitant]
     Active Substance: VERAPAMIL HYDROCHLORIDE
     Indication: ATRIAL FIBRILLATION
     Route: 048
  5. DEURSIL [Concomitant]
     Active Substance: URSODIOL
     Indication: HYPERBILIRUBINAEMIA
     Route: 048

REACTIONS (3)
  - Hyperbilirubinaemia [Recovered/Resolved]
  - Pleural effusion [Recovered/Resolved]
  - Gravitational oedema [Recovered/Resolved]

NARRATIVE: CASE EVENT DATE: 20150914
